FAERS Safety Report 6010218-2 (Version None)
Quarter: 2008Q4

REPORT INFORMATION
  Report Type: 
  Country: None (occurrence: None)
  Receive Date: 20081218
  Receipt Date: 20071130
  Transmission Date: 20090506
  Serious: No
  Sender: FDA-Public Use
  Company Number: A0698177A

PATIENT

DRUGS (1)
  1. FLONASE [Suspect]
     Route: 045
     Dates: start: 20070601

REACTIONS (2)
  - DRY SKIN [None]
  - EPISTAXIS [None]
